FAERS Safety Report 26006109 (Version 3)
Quarter: 2025Q4

REPORT INFORMATION
  Report Type: Spontaneous
  Country: JP (occurrence: JP)
  Receive Date: 20251106
  Receipt Date: 20251230
  Transmission Date: 20260118
  Serious: Yes (Other)
  Sender: ALEXION PHARMACEUTICALS
  Company Number: JP-ASTRAZENECA-202510JPN028481JP

PATIENT
  Age: 51 Year
  Sex: Male
  Weight: 53 kg

DRUGS (3)
  1. ULTOMIRIS [Suspect]
     Active Substance: RAVULIZUMAB-CWVZ
     Indication: Neuromyelitis optica spectrum disorder
     Dosage: 2400 MILLIGRAM, QD
     Route: 065
     Dates: start: 20240701, end: 20240701
  2. ULTOMIRIS [Suspect]
     Active Substance: RAVULIZUMAB-CWVZ
     Dosage: 3000 MILLIGRAM, QD
     Route: 065
     Dates: start: 20240715, end: 20250210
  3. CARBAMAZEPINE [Concomitant]
     Active Substance: CARBAMAZEPINE
     Indication: Neuromyelitis optica spectrum disorder
     Dosage: 150 MILLIGRAM, BID
     Route: 061
     Dates: start: 20140607, end: 20240716

REACTIONS (1)
  - Rash [Recovered/Resolved]

NARRATIVE: CASE EVENT DATE: 20240918
